FAERS Safety Report 23439493 (Version 1)
Quarter: 2024Q1

REPORT INFORMATION
  Report Type: Spontaneous
  Country: US (occurrence: US)
  Receive Date: 20240124
  Receipt Date: 20240124
  Transmission Date: 20240410
  Serious: Yes (Other)
  Sender: FDA-Public Use
  Company Number: US-AMGEN-USASP2024010647

PATIENT
  Age: 10 Year
  Sex: Male

DRUGS (5)
  1. INFLIXIMAB [Suspect]
     Active Substance: INFLIXIMAB
     Indication: Crohn^s disease
     Dosage: 10 MILLIGRAM/KILOGRAM
     Route: 065
  2. INFLIXIMAB [Suspect]
     Active Substance: INFLIXIMAB
     Dosage: 15 MILLIGRAM/KILOGRAM, Q4WK
     Route: 065
  3. OMEPRAZOLE [Concomitant]
     Active Substance: OMEPRAZOLE
     Indication: Gastritis
     Dosage: UNK
     Route: 065
  4. IRON [Concomitant]
     Active Substance: IRON
     Indication: Gastritis
     Dosage: UNK
     Route: 065
  5. BUDESONIDE [Concomitant]
     Active Substance: BUDESONIDE
     Indication: Crohn^s disease
     Dosage: UNK, COMPLETED 3 MONTHS
     Route: 065

REACTIONS (8)
  - Pyloric stenosis [Unknown]
  - Vitamin B12 deficiency [Unknown]
  - Iron deficiency anaemia [Unknown]
  - Chronic gastritis [Unknown]
  - Serum ferritin increased [Unknown]
  - Drug level decreased [Unknown]
  - Therapy partial responder [Unknown]
  - Off label use [Unknown]
